FAERS Safety Report 10469832 (Version 1)
Quarter: 2014Q3

REPORT INFORMATION
  Report Type: Spontaneous
  Country: US (occurrence: None)
  Receive Date: 20140922
  Receipt Date: 20140922
  Transmission Date: 20150326
  Serious: Yes (Other)
  Sender: FDA-Public Use
  Company Number: None

PATIENT
  Age: 22 Year
  Sex: Male

DRUGS (1)
  1. BENZEDREX 09-19-2014 [Suspect]
     Active Substance: PROPYLHEXEDRINE
     Indication: EUPHORIC MOOD
     Dosage: 2 INHALATION EACH NOSTRIL, ONCE DAILY, INHALATION
     Route: 055
     Dates: start: 20140204, end: 20140920

REACTIONS (3)
  - Drug abuse [None]
  - Physical assault [None]
  - Aggression [None]

NARRATIVE: CASE EVENT DATE: 20140920
